FAERS Safety Report 18119998 (Version 2)
Quarter: 2020Q3

REPORT INFORMATION
  Report Type: Report from Study
  Country: CO (occurrence: CO)
  Receive Date: 20200806
  Receipt Date: 20200818
  Transmission Date: 20201103
  Serious: Yes (Hospitalization, Other)
  Sender: FDA-Public Use
  Company Number: CO-ASTRAZENECA-2020SE96740

PATIENT
  Age: 26108 Day
  Sex: Female

DRUGS (1)
  1. BRILINTA [Suspect]
     Active Substance: TICAGRELOR
     Indication: ACUTE CORONARY SYNDROME
     Route: 048
     Dates: start: 20191209, end: 20200626

REACTIONS (5)
  - Vomiting [Unknown]
  - Blood pressure decreased [Unknown]
  - Angina unstable [Unknown]
  - Infarction [Unknown]
  - Cardiac failure [Unknown]

NARRATIVE: CASE EVENT DATE: 20200621
